FAERS Safety Report 11092981 (Version 1)
Quarter: 2015Q2

REPORT INFORMATION
  Report Type: Spontaneous
  Country: LV (occurrence: LV)
  Receive Date: 20150506
  Receipt Date: 20150506
  Transmission Date: 20150821
  Serious: Yes (Other)
  Sender: FDA-Public Use
  Company Number: LV-TEVA-548529ISR

PATIENT
  Age: 51 Year
  Sex: Female

DRUGS (1)
  1. TAMOXIFENUM [Suspect]
     Active Substance: TAMOXIFEN
     Indication: BREAST CANCER FEMALE
     Dosage: 20 MILLIGRAM DAILY;
     Route: 048
     Dates: start: 20150101

REACTIONS (9)
  - Breast pain [Recovering/Resolving]
  - Nervousness [Recovering/Resolving]
  - Fatigue [Not Recovered/Not Resolved]
  - Breast discomfort [Not Recovered/Not Resolved]
  - Weight increased [Recovering/Resolving]
  - Swelling [Not Recovered/Not Resolved]
  - Bone pain [Recovering/Resolving]
  - Malaise [Not Recovered/Not Resolved]
  - Breast disorder [Not Recovered/Not Resolved]

NARRATIVE: CASE EVENT DATE: 20150105
